FAERS Safety Report 15603465 (Version 4)
Quarter: 2019Q2

REPORT INFORMATION
  Report Type: Spontaneous
  Country: JP (occurrence: JP)
  Receive Date: 20181109
  Receipt Date: 20190403
  Transmission Date: 20190711
  Serious: Yes (Hospitalization, Other)
  Sender: FDA-Public Use
  Company Number: JP-SHIRE-JP201843347

PATIENT

DRUGS (5)
  1. LIALDA [Suspect]
     Active Substance: MESALAMINE
     Indication: COLITIS ULCERATIVE
     Dosage: 1200 MG, UNK
     Route: 048
     Dates: start: 201807
  2. LIALDA [Suspect]
     Active Substance: MESALAMINE
     Dosage: 4800 MILLIGRAM, 1X/DAY:QD
     Route: 048
     Dates: start: 201806, end: 201810
  3. ASACOL [Concomitant]
     Active Substance: MESALAMINE
     Indication: COLITIS ULCERATIVE
     Dosage: UNK
  4. RECTABUL [Concomitant]
     Active Substance: BUDESONIDE
     Indication: COLITIS ULCERATIVE
  5. PENTASA [Concomitant]
     Active Substance: MESALAMINE
     Indication: PRODUCT USED FOR UNKNOWN INDICATION
     Route: 054

REACTIONS (4)
  - Hypersensitivity [Recovering/Resolving]
  - Renal impairment [Recovering/Resolving]
  - Hepatic function abnormal [Recovering/Resolving]
  - Cough [Recovering/Resolving]

NARRATIVE: CASE EVENT DATE: 201808
